FAERS Safety Report 6359418-2 (Version None)
Quarter: 2009Q3

REPORT INFORMATION
  Report Type: 
  Country: None (occurrence: None)
  Receive Date: 20090917
  Receipt Date: 20090908
  Transmission Date: 20100115
  Serious: Yes (Other)
  Sender: FDA-Public Use
  Company Number: US-ASTRAZENECA-2009UW13308

PATIENT
  Age: 38 Year
  Sex: Male
  Weight: 126.1 kg

DRUGS (10)
  1. SEROQUEL [Suspect]
     Indication: SCHIZOAFFECTIVE DISORDER
     Route: 048
     Dates: start: 20020101, end: 20070101
  2. SEROQUEL [Suspect]
     Indication: BIPOLAR DISORDER
     Route: 048
     Dates: start: 20020101, end: 20070101
  3. SEROQUEL [Suspect]
     Indication: DEPRESSION
     Route: 048
     Dates: start: 20020101, end: 20070101
  4. RISPERDAL [Concomitant]
     Indication: SCHIZOAFFECTIVE DISORDER
     Dates: start: 20090310, end: 20090101
  5. ZYPREXA [Concomitant]
     Indication: SCHIZOAFFECTIVE DISORDER
     Dates: start: 20020101, end: 20040101
  6. ZYPREXA [Concomitant]
     Indication: BIPOLAR DISORDER
     Dates: start: 20020101, end: 20040101
  7. ZYPREXA [Concomitant]
     Indication: DEPRESSION
     Dates: start: 20020101, end: 20040101
  8. ABILIFY [Concomitant]
     Dates: start: 20010101
  9. CLOZARIL [Concomitant]
     Dates: start: 20010101
  10. HALDOL [Concomitant]
     Dates: start: 20010101

REACTIONS (6)
  - BACK DISORDER [None]
  - FATIGUE [None]
  - PANCREATITIS [None]
  - TYPE 1 DIABETES MELLITUS [None]
  - TYPE 2 DIABETES MELLITUS [None]
  - WEIGHT INCREASED [None]
